FAERS Safety Report 18868918 (Version 3)
Quarter: 2021Q3

REPORT INFORMATION
  Report Type: Report from Study
  Country: US (occurrence: US)
  Receive Date: 20210209
  Receipt Date: 20210914
  Transmission Date: 20211014
  Serious: Yes (Death)
  Sender: FDA-Public Use
  Company Number: US-CHIASMA-2021CHI00022

PATIENT
  Age: 80 Year
  Sex: Male
  Weight: 79.37 kg

DRUGS (3)
  1. MYCAPSSA [Suspect]
     Active Substance: OCTREOTIDE
     Indication: PITUITARY TUMOUR
     Dosage: 40 MG / DAY (SPLIT TWICE A DAY, MORNING AND AT NIGHT, ON AN EMPTY STOMACH)
     Route: 048
     Dates: start: 202101
  2. UNSPECIFIED DIFFERENT VITAMINS [Concomitant]
  3. UNSPECIFIED PROSTATE MEDICATION [Concomitant]

REACTIONS (1)
  - Embolic stroke [Fatal]

NARRATIVE: CASE EVENT DATE: 20210125
